FAERS Safety Report 7757651-6 (Version None)
Quarter: 2011Q3

REPORT INFORMATION
  Report Type: 
  Country: None (occurrence: None)
  Receive Date: 20110916
  Receipt Date: 20110903
  Transmission Date: 20111222
  Serious: Yes (Other)
  Sender: FDA-Public Use
  Company Number: PHHY2011VE80037

PATIENT
  Sex: Female

DRUGS (11)
  1. GINKGO BILOBA [Concomitant]
  2. MOTRIN [Concomitant]
     Dosage: UNK
  3. OMEPRAZOLE [Concomitant]
  4. STUGERON [Concomitant]
     Dosage: UNK
  5. INDAPAMIDE [Concomitant]
  6. CLONAZEPAM [Concomitant]
     Indication: NERVOUSNESS
  7. DANTOINAL [Concomitant]
     Indication: CONVULSION
  8. DIOVAN [Suspect]
     Dosage: UNK
  9. TRENTAL ^ALBERT-ROUSSEL^ [Concomitant]
     Dosage: UNK
  10. ALENDRONATE SODIUM [Concomitant]
     Dosage: UNK
  11. ASPIRIN [Concomitant]

REACTIONS (5)
  - TINNITUS [None]
  - CONVULSION [None]
  - OSTEOPOROSIS [None]
  - HERNIA [None]
  - PAIN IN EXTREMITY [None]
